FAERS Safety Report 8940004 (Version 1)
Quarter: 2012Q4

REPORT INFORMATION
  Report Type: 
  Country: KP (occurrence: KP)
  Receive Date: 20121203
  Receipt Date: 20121203
  Transmission Date: 20130627
  Serious: Yes (Other)
  Sender: FDA-Public Use
  Company Number: KP-RANBAXY-2012R1-62474

PATIENT
  Age: 55 Year
  Sex: Male

DRUGS (3)
  1. IBUPROFEN [Suspect]
     Indication: ARTHRALGIA
     Dosage: unk
     Route: 065
  2. PIROXICAM [Suspect]
     Indication: ARTHRALGIA
     Dosage: unk
     Route: 065
  3. BETAMETHASONE [Concomitant]
     Indication: ARTHRALGIA
     Dosage: unk
     Route: 065

REACTIONS (1)
  - Duodenal obstruction [Recovered/Resolved]
